FAERS Safety Report 6950219-0 (Version None)
Quarter: 2010Q3

REPORT INFORMATION
  Report Type: 
  Country: None (occurrence: None)
  Receive Date: 20100828
  Receipt Date: 20100129
  Transmission Date: 20110219
  Serious: No
  Sender: FDA-Public Use
  Company Number: US-ABBOTT-10P-163-0623713-00

PATIENT
  Sex: Male
  Weight: 81.72 kg

DRUGS (4)
  1. NIASPAN [Suspect]
     Indication: BLOOD CHOLESTEROL INCREASED
     Dosage: EVERY NIGHT
     Dates: start: 20091101, end: 20091201
  2. NIASPAN [Suspect]
     Dosage: EVERY NIGHT
     Dates: start: 20091201, end: 20100113
  3. NIASPAN [Suspect]
     Dosage: 2 EVERY NIGHT
     Dates: start: 20100114
  4. DOXAZOSIN MESYLATE [Concomitant]
     Indication: PROSTATOMEGALY

REACTIONS (3)
  - FLUSHING [None]
  - PRURITUS [None]
  - RASH [None]
